FAERS Safety Report 19872382 (Version 1)
Quarter: 2021Q3

REPORT INFORMATION
  Report Type: Spontaneous
  Country: US (occurrence: US)
  Receive Date: 20210921
  Receipt Date: 20210921
  Transmission Date: 20211014
  Serious: Yes (Hospitalization)
  Sender: FDA-Public Use
  Company Number: None

PATIENT
  Age: 6 Year
  Sex: Female

DRUGS (1)
  1. AFINITOR DISPERZ [Suspect]
     Active Substance: EVEROLIMUS
     Indication: MALIGNANT NEOPLASM OF SPINAL CORD
     Route: 048
     Dates: start: 202106

REACTIONS (4)
  - Urinary tract infection [None]
  - Brain neoplasm [None]
  - Oropharyngeal pain [None]
  - Hypoaesthesia [None]

NARRATIVE: CASE EVENT DATE: 20210921
